FAERS Safety Report 4584056-1 (Version None)
Quarter: 2005Q1

REPORT INFORMATION
  Report Type: 
  Country: None (occurrence: None)
  Receive Date: 20050216
  Receipt Date: 20050211
  Transmission Date: 20050727
  Serious: Yes (Hospitalization)
  Sender: FDA-Public Use
  Company Number: DE-MERCK-0502DEU00098

PATIENT
  Age: 62 Year
  Sex: Male

DRUGS (10)
  1. VIOXX [Suspect]
     Indication: PERIODONTAL DISEASE
     Route: 048
     Dates: start: 20020101, end: 20030101
  2. VIOXX [Suspect]
     Route: 048
     Dates: start: 20030101, end: 20030101
  3. VIOXX [Suspect]
     Route: 048
     Dates: start: 20030101, end: 20030101
  4. VIOXX [Suspect]
     Route: 048
     Dates: start: 20030101, end: 20030101
  5. VIOXX [Suspect]
     Route: 048
     Dates: start: 20040701
  6. VIOXX [Suspect]
     Indication: TOOTH ABSCESS
     Route: 048
     Dates: start: 20020101, end: 20030101
  7. VIOXX [Suspect]
     Route: 048
     Dates: start: 20030101, end: 20030101
  8. VIOXX [Suspect]
     Route: 048
     Dates: start: 20030101, end: 20030101
  9. VIOXX [Suspect]
     Route: 048
     Dates: start: 20030101, end: 20030101
  10. VIOXX [Suspect]
     Route: 048
     Dates: start: 20040701

REACTIONS (5)
  - CARDIAC OUTPUT DECREASED [None]
  - CARDIOMEGALY [None]
  - CARDIOMYOPATHY [None]
  - MITRAL VALVE INCOMPETENCE [None]
  - PRESCRIBED OVERDOSE [None]
